FAERS Safety Report 11535091 (Version 2)
Quarter: 2015Q4

REPORT INFORMATION
  Report Type: Spontaneous
  Country: JP (occurrence: JP)
  Receive Date: 20150922
  Receipt Date: 20151007
  Transmission Date: 20160304
  Serious: Yes (Death, Hospitalization, Other)
  Sender: FDA-Public Use
  Company Number: JP-SUN PHARMACEUTICAL INDUSTRIES LTD-2015RR-103511

PATIENT

DRUGS (11)
  1. PREDNIN [Suspect]
     Active Substance: PREDNISOLONE SODIUM PHOSPHATE
     Indication: ANTISYNTHETASE SYNDROME
     Dosage: 10 MG, DAILY
     Route: 048
     Dates: start: 1996
  2. VANCOMYCIN HYDROCHLORIDE. [Suspect]
     Active Substance: VANCOMYCIN HYDROCHLORIDE
     Indication: EVIDENCE BASED TREATMENT
     Dosage: 0.8 G, BID
     Route: 042
     Dates: start: 20130719, end: 20130722
  3. ALENDRONATE [Concomitant]
     Active Substance: ALENDRONATE SODIUM
     Indication: PRODUCT USED FOR UNKNOWN INDICATION
     Dosage: 35 MG, 1/WEEK
     Route: 065
     Dates: start: 1996, end: 20130907
  4. ALFACALCIDOL [Concomitant]
     Active Substance: ALFACALCIDOL
     Indication: PRODUCT USED FOR UNKNOWN INDICATION
     Dosage: 0.5 ?G, DAILY
     Route: 065
     Dates: start: 1996, end: 20130907
  5. PREDNIN [Suspect]
     Active Substance: PREDNISOLONE SODIUM PHOSPHATE
     Indication: ANTISYNTHETASE SYNDROME
     Dosage: 9.5 MG, DAILY
     Route: 048
  6. TIENAM [Suspect]
     Active Substance: CILASTATIN SODIUM\IMIPENEM
     Indication: MYCOBACTERIUM ABSCESSUS INFECTION
     Dosage: 0.25 MG, BID
     Route: 042
     Dates: start: 20130722, end: 20130907
  7. PREDNIN [Suspect]
     Active Substance: PREDNISOLONE SODIUM PHOSPHATE
     Indication: ANTISYNTHETASE SYNDROME
     Dosage: 45-60 MG/DAY
     Route: 048
  8. AMIKACIN [Suspect]
     Active Substance: AMIKACIN
     Indication: MYCOBACTERIUM ABSCESSUS INFECTION
     Dosage: 200 MG, DAILY
     Route: 042
     Dates: start: 20130722, end: 20130907
  9. LANSOPRAZOLE. [Concomitant]
     Active Substance: LANSOPRAZOLE
     Indication: PRODUCT USED FOR UNKNOWN INDICATION
     Dosage: 15 MG, DAILY
     Route: 065
     Dates: start: 1996, end: 20130907
  10. METHYLPREDNISOLONE. [Suspect]
     Active Substance: METHYLPREDNISOLONE
     Indication: ANTISYNTHETASE SYNDROME
     Dosage: PULSE
     Route: 065
  11. CLARITH [Suspect]
     Active Substance: CLARITHROMYCIN
     Indication: MYCOBACTERIUM ABSCESSUS INFECTION
     Dosage: 400 MG, BID
     Route: 048
     Dates: start: 20130722, end: 20130907

REACTIONS (6)
  - Candida infection [Recovered/Resolved]
  - Systemic candida [Fatal]
  - Respiratory failure [Fatal]
  - Arthritis bacterial [Recovered/Resolved]
  - Mycobacterium abscessus infection [Recovered/Resolved]
  - Candida endophthalmitis [Recovered/Resolved]

NARRATIVE: CASE EVENT DATE: 2013
